FAERS Safety Report 9384974 (Version 1)
Quarter: 2013Q3

REPORT INFORMATION
  Report Type: Spontaneous
  Country: FR (occurrence: FR)
  Receive Date: 20130705
  Receipt Date: 20130705
  Transmission Date: 20140515
  Serious: Yes (Hospitalization)
  Sender: FDA-Public Use
  Company Number: FR-JNJFOC-20130619238

PATIENT
  Age: 39 Year
  Sex: Female

DRUGS (7)
  1. PREZISTA [Suspect]
     Indication: HIV INFECTION
     Route: 048
     Dates: start: 20130516
  2. NORVIR [Suspect]
     Indication: HIV INFECTION
     Route: 048
     Dates: start: 20130516
  3. TRUVADA [Suspect]
     Indication: HIV INFECTION
     Dosage: 200MG/ 245MG
     Route: 048
     Dates: start: 20130516
  4. ADIAZINE [Suspect]
     Indication: TOXOPLASMOSIS
     Route: 048
     Dates: start: 20130504, end: 20130528
  5. BACTRIM [Suspect]
     Indication: INFECTION PROPHYLAXIS
     Dosage: 800MG / 160MG ONE HALF PER DAY
     Route: 048
     Dates: start: 20130517
  6. MALOCIDE [Suspect]
     Indication: TOXOPLASMOSIS
     Route: 048
     Dates: start: 20130521, end: 20130528
  7. MALOCIDE [Suspect]
     Indication: TOXOPLASMOSIS
     Route: 048
     Dates: start: 20130504, end: 20130517

REACTIONS (2)
  - Mixed liver injury [Recovering/Resolving]
  - Pancreatitis acute [Unknown]
